FAERS Safety Report 13295660 (Version 2)
Quarter: 2017Q1

REPORT INFORMATION
  Report Type: Spontaneous
  Country: NL (occurrence: NL)
  Receive Date: 20170303
  Receipt Date: 20170323
  Transmission Date: 20170428
  Serious: Yes (Life-Threatening, Hospitalization, Other)
  Sender: FDA-Public Use
  Company Number: NL-TEVA-745166ISR

PATIENT
  Age: 66 Year
  Sex: Male

DRUGS (4)
  1. HYDROCHLOROTHIAZIDE. [Concomitant]
     Active Substance: HYDROCHLOROTHIAZIDE
     Route: 065
  2. GLIMEPIRIDE. [Concomitant]
     Active Substance: GLIMEPIRIDE
     Route: 065
  3. NIFEDIPINE. [Suspect]
     Active Substance: NIFEDIPINE
     Indication: PRODUCT USED FOR UNKNOWN INDICATION
     Route: 065
  4. METFORMIN [Suspect]
     Active Substance: METFORMIN HYDROCHLORIDE
     Indication: PRODUCT USED FOR UNKNOWN INDICATION
     Dosage: 60 GRAM DAILY; 60 TABLETS CONTAINING 1000MG METFORMIN
     Route: 065

REACTIONS (13)
  - Suicide attempt [Unknown]
  - Hypomagnesaemia [Unknown]
  - Acute kidney injury [Unknown]
  - Hypernatraemia [Unknown]
  - Hypokalaemia [Unknown]
  - Intentional overdose [Unknown]
  - Toxicity to various agents [Unknown]
  - Hypotension [Unknown]
  - Hypocalcaemia [Unknown]
  - Lactic acidosis [Recovering/Resolving]
  - Shock [Recovered/Resolved]
  - Hypoglycaemia [Unknown]
  - Hypophosphataemia [Unknown]
